FAERS Safety Report 7842796-2 (Version None)
Quarter: 2011Q4

REPORT INFORMATION
  Report Type: 
  Country: None (occurrence: None)
  Receive Date: 20111025
  Receipt Date: 20111012
  Transmission Date: 20120403
  Serious: Yes (Hospitalization)
  Sender: FDA-Public Use
  Company Number: US-BAYER-2011-003042

PATIENT
  Sex: Female
  Weight: 58.957 kg

DRUGS (9)
  1. DROSPIRENONE AND ETHINYL ESTRADIOL [Suspect]
     Indication: CONTRACEPTION
     Dosage: UNK
     Dates: start: 20080701, end: 20081001
  2. SINGULAIR [Concomitant]
     Indication: ASTHMA
     Dosage: UNK
     Dates: start: 20000101
  3. YASMIN [Suspect]
     Indication: CONTRACEPTION
     Dosage: UNK
     Dates: start: 20030801
  4. ADVAIR DISKUS 100/50 [Concomitant]
     Indication: ASTHMA
     Dosage: UNK UNK, PRN
     Dates: start: 20000101
  5. ALBUTEROL [Concomitant]
     Indication: ASTHMA
     Dosage: UNK UNK, PRN
     Dates: start: 20000101
  6. VALACICLOVIR [Concomitant]
     Route: 048
  7. YASMIN [Suspect]
     Dosage: UNK
     Dates: start: 20040301, end: 20080701
  8. PROAIR HFA [Concomitant]
     Indication: ASTHMA
     Dosage: UNK
     Dates: start: 20000101
  9. YASMIN [Suspect]
     Dosage: UNK
     Dates: start: 20081101, end: 20090701

REACTIONS (4)
  - CHOLELITHIASIS [None]
  - PAIN [None]
  - DYSPEPSIA [None]
  - CHOLECYSTITIS CHRONIC [None]
